FAERS Safety Report 21318865 (Version 1)
Quarter: 2022Q3

REPORT INFORMATION
  Report Type: Spontaneous
  Country: US (occurrence: US)
  Receive Date: 20220911
  Receipt Date: 20220911
  Transmission Date: 20221026
  Serious: No
  Sender: FDA-Public Use
  Company Number: US-SA-2022SA362685

PATIENT
  Age: 52 Year
  Sex: Female

DRUGS (2)
  1. CAPRELSA [Suspect]
     Active Substance: VANDETANIB
     Indication: Thyroid cancer
     Dosage: 300 MG
     Dates: start: 20120327
  2. MEGESTROL [Concomitant]
     Active Substance: MEGESTROL
     Indication: Appetite disorder
     Dosage: UNK

REACTIONS (1)
  - Weight fluctuation [Unknown]
